FAERS Safety Report 6049356-7 (Version None)
Quarter: 2009Q1

REPORT INFORMATION
  Report Type: 
  Country: None (occurrence: None)
  Receive Date: 20090123
  Receipt Date: 20090113
  Transmission Date: 20090719
  Serious: Yes (Other)
  Sender: FDA-Public Use
  Company Number: TW-PFIZER INC-2009158869

PATIENT

DRUGS (1)
  1. NICOTINE [Suspect]
     Dosage: 10 MG

REACTIONS (5)
  - ASTHMA [None]
  - DECREASED APPETITE [None]
  - FLATULENCE [None]
  - OVERDOSE [None]
  - PALPITATIONS [None]
